FAERS Safety Report 9105999 (Version 4)
Quarter: 2013Q4

REPORT INFORMATION
  Report Type: Report from Study
  Country: US (occurrence: US)
  Receive Date: 20130221
  Receipt Date: 20131015
  Transmission Date: 20140711
  Serious: Yes (Hospitalization)
  Sender: FDA-Public Use
  Company Number: US-MERCK-1204USA01758

PATIENT
  Age: 55 Year
  Sex: Male
  Weight: 83.69 kg

DRUGS (35)
  1. BLINDED BOCEPREVIR [Suspect]
     Indication: CHRONIC HEPATITIS C
     Dosage: UNK
     Route: 048
     Dates: start: 20111228, end: 20120224
  2. BLINDED MK-5172 [Suspect]
     Indication: CHRONIC HEPATITIS C
     Dosage: UNK
     Route: 048
     Dates: start: 20111228, end: 20120224
  3. BLINDED PEGINTERFERON ALFA-2B [Suspect]
     Indication: CHRONIC HEPATITIS C
     Dosage: UNK
     Route: 048
     Dates: start: 20111228, end: 20120224
  4. BLINDED PLACEBO [Suspect]
     Indication: CHRONIC HEPATITIS C
     Dosage: UNK
     Route: 048
     Dates: start: 20111228, end: 20120224
  5. BLINDED POST TRIAL THERAPY [Suspect]
     Indication: CHRONIC HEPATITIS C
     Dosage: UNK
     Route: 048
     Dates: start: 20111228, end: 20120224
  6. BLINDED PRE TRIAL THERAPY [Suspect]
     Indication: CHRONIC HEPATITIS C
     Dosage: UNK
     Route: 048
     Dates: start: 20111228, end: 20120224
  7. BLINDED RIBAVIRIN [Suspect]
     Indication: CHRONIC HEPATITIS C
     Dosage: UNK
     Route: 048
     Dates: start: 20111228, end: 20120224
  8. BLINDED BOCEPREVIR [Suspect]
     Dosage: UNK
     Route: 048
     Dates: start: 20120305, end: 20120305
  9. BLINDED MK-5172 [Suspect]
     Dosage: UNK
     Route: 048
     Dates: start: 20120305, end: 20120305
  10. BLINDED PEGINTERFERON ALFA-2B [Suspect]
     Dosage: UNK
     Route: 048
     Dates: start: 20120305, end: 20120305
  11. BLINDED PLACEBO [Suspect]
     Dosage: UNK
     Route: 048
     Dates: start: 20120305, end: 20120305
  12. BLINDED POST TRIAL THERAPY [Suspect]
     Dosage: UNK
     Route: 048
     Dates: start: 20120305, end: 20120305
  13. BLINDED PRE TRIAL THERAPY [Suspect]
     Dosage: UNK
     Route: 048
     Dates: start: 20120305, end: 20120305
  14. BLINDED RIBAVIRIN [Suspect]
     Dosage: UNK
     Route: 048
     Dates: start: 20120305, end: 20120305
  15. BLINDED BOCEPREVIR [Suspect]
     Dosage: UNK
     Route: 048
     Dates: start: 20120309, end: 20120321
  16. BLINDED MK-5172 [Suspect]
     Dosage: UNK
     Route: 048
     Dates: start: 20120309, end: 20120321
  17. BLINDED PEGINTERFERON ALFA-2B [Suspect]
     Dosage: UNK
     Route: 048
     Dates: start: 20120309, end: 20120321
  18. BLINDED PLACEBO [Suspect]
     Dosage: UNK
     Route: 048
     Dates: start: 20120309, end: 20120321
  19. BLINDED POST TRIAL THERAPY [Suspect]
     Dosage: UNK
     Route: 048
     Dates: start: 20120309, end: 20120321
  20. BLINDED PRE TRIAL THERAPY [Suspect]
     Dosage: UNK
     Route: 048
     Dates: start: 20120309, end: 20120321
  21. BLINDED RIBAVIRIN [Suspect]
     Dosage: UNK
     Route: 048
     Dates: start: 20120309, end: 20120321
  22. BLINDED THERAPY [Suspect]
     Indication: CHRONIC HEPATITIS C
     Dosage: UNK
     Route: 048
     Dates: start: 20120127, end: 20120224
  23. PEGINTRON [Suspect]
     Indication: CHRONIC HEPATITIS C
     Dosage: 150 MICROGRAMS/0.5 ML,0.5 ML, QW
     Route: 058
     Dates: start: 20111228, end: 20120222
  24. PEGINTRON [Suspect]
     Dosage: 150 MICROGRAMS/0.5 ML, 0.3 ML, QW
     Route: 058
     Dates: start: 20120307, end: 20120314
  25. PEGINTRON [Suspect]
     Dosage: 150 MICROGRAMS/0.5 ML, 0.3 ML, QW
     Route: 058
     Dates: start: 20120321, end: 20120411
  26. RIBAVIRIN [Suspect]
     Indication: CHRONIC HEPATITIS C
     Dosage: 3 CAPSULES, FIRST DOSE
     Route: 048
     Dates: start: 20111228, end: 20111228
  27. RIBAVIRIN [Suspect]
     Dosage: 3 CAPSULES, QAM
     Route: 048
     Dates: start: 20111229, end: 20120224
  28. RIBAVIRIN [Suspect]
     Dosage: 3 CAPSULES, QPM
     Route: 048
     Dates: start: 20111229, end: 20120223
  29. RIBAVIRIN [Suspect]
     Dosage: 3 CAPSULES, QAM
     Route: 048
     Dates: start: 20120305, end: 20120305
  30. RIBAVIRIN [Suspect]
     Dosage: 1 CAPSULE, QAM
     Route: 048
     Dates: start: 20120309, end: 20120319
  31. RIBAVIRIN [Suspect]
     Dosage: 2 CAPSULES, QAM
     Route: 048
     Dates: start: 20120320, end: 20120320
  32. RIBAVIRIN [Suspect]
     Dosage: 1 CAPSULE, QPM
     Route: 048
     Dates: start: 20120307, end: 20120403
  33. RIBAVIRIN [Suspect]
     Dosage: 2 CAPSULES, QAM
     Route: 048
     Dates: start: 20120321, end: 20120404
  34. SYNTHROID [Concomitant]
     Indication: HYPOTHYROIDISM
     Dosage: 75 MICROGRAM, QD
     Route: 048
     Dates: start: 20110726
  35. CENTRUM (MINERALS (UNSPECIFIED) (+) VITAMINS (UNSPECIFIED)) [Concomitant]
     Indication: ROUTINE HEALTH MAINTENANCE
     Dosage: 1 TABLET, QD
     Route: 048
     Dates: start: 200906

REACTIONS (1)
  - Deep vein thrombosis [Recovered/Resolved]
